FAERS Safety Report 26045623 (Version 1)
Quarter: 2025Q4

REPORT INFORMATION
  Report Type: Spontaneous
  Country: US (occurrence: US)
  Receive Date: 20251114
  Receipt Date: 20251114
  Transmission Date: 20260117
  Serious: Yes (Other)
  Sender: ROCHE
  Company Number: US-ROCHE-10000434576

PATIENT
  Age: 78 Year
  Sex: Female

DRUGS (4)
  1. VENCLEXTA [Suspect]
     Active Substance: VENETOCLAX
     Indication: Chronic lymphocytic leukaemia
     Route: 048
     Dates: start: 202505, end: 202510
  2. VENCLEXTA [Suspect]
     Active Substance: VENETOCLAX
     Route: 048
     Dates: start: 202507
  3. NEUPOGEN [Suspect]
     Active Substance: FILGRASTIM
     Indication: Neutrophil count decreased
     Dosage: DAILY DOSE(S): NEUPOGEN GROWTH FACTOR INJECTION
     Route: 065
  4. GAZYVA [Suspect]
     Active Substance: OBINUTUZUMAB
     Indication: Product used for unknown indication
     Route: 065

REACTIONS (9)
  - Cough [Unknown]
  - Emotional disorder [Not Recovered/Not Resolved]
  - White blood cell count abnormal [Unknown]
  - Back pain [Unknown]
  - Bone pain [Unknown]
  - Chest pain [Unknown]
  - Neutrophil count decreased [Not Recovered/Not Resolved]
  - Platelet transfusion [Unknown]
  - Loss of personal independence in daily activities [Not Recovered/Not Resolved]

NARRATIVE: CASE EVENT DATE: 20251001
